FAERS Safety Report 21742559 (Version 1)
Quarter: 2022Q4

REPORT INFORMATION
  Report Type: Report from Study
  Country: US (occurrence: US)
  Receive Date: 20221216
  Receipt Date: 20221216
  Transmission Date: 20230113
  Serious: Yes (Hospitalization)
  Sender: FDA-Public Use
  Company Number: US-ABBVIE-4233209

PATIENT
  Sex: Female

DRUGS (1)
  1. RINVOQ [Suspect]
     Active Substance: UPADACITINIB
     Indication: Rheumatoid arthritis
     Route: 048

REACTIONS (8)
  - Dyspepsia [Unknown]
  - Anxiety [Not Recovered/Not Resolved]
  - Tremor [Unknown]
  - Hypoaesthesia [Unknown]
  - Dizziness [Unknown]
  - Cardiac disorder [Unknown]
  - Blood potassium decreased [Unknown]
  - Palpitations [Not Recovered/Not Resolved]

NARRATIVE: CASE EVENT DATE: 20220101
